FAERS Safety Report 9232579 (Version 3)
Quarter: 2013Q3

REPORT INFORMATION
  Report Type: Spontaneous
  Country: US (occurrence: US)
  Receive Date: 20130416
  Receipt Date: 20130822
  Transmission Date: 20140515
  Serious: Yes (Hospitalization)
  Sender: FDA-Public Use
  Company Number: US-BIOGENIDEC-2013BI033362

PATIENT
  Age: 54 Year
  Sex: Female

DRUGS (1)
  1. TYSABRI [Suspect]
     Indication: MULTIPLE SCLEROSIS
     Route: 042
     Dates: start: 20120430, end: 20130314

REACTIONS (10)
  - Drug ineffective [Unknown]
  - Pain in extremity [Unknown]
  - Ataxia [Unknown]
  - Extensor plantar response [Unknown]
  - Fatigue [Unknown]
  - Multiple sclerosis relapse [Recovered/Resolved]
  - Diplegia [Recovered/Resolved]
  - Loss of control of legs [Recovered/Resolved]
  - Paraesthesia [Not Recovered/Not Resolved]
  - Sensation of heaviness [Unknown]
